FAERS Safety Report 5627529-2 (Version None)
Quarter: 2008Q1

REPORT INFORMATION
  Report Type: 
  Country: None (occurrence: None)
  Receive Date: 20080215
  Receipt Date: 20071113
  Transmission Date: 20080703
  Serious: No
  Sender: FDA-Public Use
  Company Number: A0694239A

PATIENT
  Age: 74 Year
  Sex: Male

DRUGS (10)
  1. COREG CR [Suspect]
     Dosage: 80MG PER DAY
     Route: 048
  2. ADVAIR DISKUS 100/50 [Suspect]
     Indication: DRUG USE FOR UNKNOWN INDICATION
     Route: 055
  3. FUROSEMIDE INTENSOL [Concomitant]
  4. ANEUROL [Concomitant]
  5. SODIUM BICARBONATE [Concomitant]
  6. THYROID TAB [Concomitant]
  7. UNSPECIFIED MEDICATION [Concomitant]
  8. ADVAIR DISKUS 100/50 [Concomitant]
  9. ASPIRIN [Concomitant]
  10. FLOMAX [Concomitant]

REACTIONS (1)
  - RASH [None]
